FAERS Safety Report 16230291 (Version 1)
Quarter: 2019Q2

REPORT INFORMATION
  Report Type: Spontaneous
  Country: AU (occurrence: AU)
  Receive Date: 20190423
  Receipt Date: 20190423
  Transmission Date: 20190711
  Serious: Yes (Hospitalization)
  Sender: FDA-Public Use
  Company Number: AU-AMREGENT-20190774

PATIENT
  Age: 73 Year
  Sex: Female

DRUGS (3)
  1. FERINJECT [Suspect]
     Active Substance: FERRIC CARBOXYMALTOSE
     Dosage: 1 GM (TOTAL 11 INFUSIONS)
     Route: 041
  2. ENTECAVIR. [Concomitant]
     Active Substance: ENTECAVIR
     Dosage: 0.5 MG 1 IN 1 D
     Route: 065
  3. SPIRONOLACTONE. [Concomitant]
     Active Substance: SPIRONOLACTONE
     Dosage: 50 MG 1 IN 1 D
     Route: 065

REACTIONS (4)
  - Blood 25-hydroxycholecalciferol decreased [Recovered/Resolved]
  - Osteopenia [Recovered/Resolved]
  - Hypophosphataemia [Recovered/Resolved]
  - Product use in unapproved indication [Unknown]
